FAERS Safety Report 8785905 (Version 2)
Quarter: 2012Q4

REPORT INFORMATION
  Report Type: 
  Country: US (occurrence: US)
  Receive Date: 20120914
  Receipt Date: 20120926
  Transmission Date: 20130627
  Serious: Yes (Death)
  Sender: FDA-Public Use
  Company Number: US-ROCHE-1127492

PATIENT
  Sex: Female

DRUGS (3)
  1. AVASTIN [Suspect]
     Indication: BREAST CANCER FEMALE
     Route: 042
     Dates: start: 20060310, end: 200708
  2. CARBOPLATIN [Concomitant]
  3. GEMCITABINE [Concomitant]

REACTIONS (2)
  - Disease progression [Fatal]
  - Drug ineffective [Unknown]
